FAERS Safety Report 7995369-5 (Version None)
Quarter: 2011Q4

REPORT INFORMATION
  Report Type: 
  Country: None (occurrence: None)
  Receive Date: 20111220
  Receipt Date: 20111209
  Transmission Date: 20120403
  Serious: Yes (Other)
  Sender: FDA-Public Use
  Company Number: US-JNJFOC-20111204663

PATIENT
  Sex: Female

DRUGS (5)
  1. AMBIEN [Concomitant]
     Indication: INSOMNIA
     Route: 048
     Dates: start: 20100101
  2. REMICADE [Suspect]
     Indication: CROHN'S DISEASE
     Route: 042
     Dates: start: 20110901
  3. PREDNISONE TAB [Concomitant]
     Indication: CROHN'S DISEASE
     Route: 048
  4. REMICADE [Suspect]
     Indication: ANKYLOSING SPONDYLITIS
     Route: 042
     Dates: start: 20110901
  5. PREDNISONE TAB [Concomitant]
     Indication: ANKYLOSING SPONDYLITIS
     Route: 048

REACTIONS (7)
  - DRUG INEFFECTIVE [None]
  - PAIN IN EXTREMITY [None]
  - CANDIDIASIS [None]
  - PAIN [None]
  - SENSATION OF HEAVINESS [None]
  - BLOOD POTASSIUM DECREASED [None]
  - VITAMIN D DEFICIENCY [None]
